FAERS Safety Report 23896743 (Version 2)
Quarter: 2024Q3

REPORT INFORMATION
  Report Type: Report from Study
  Country: JP (occurrence: JP)
  Receive Date: 20240524
  Receipt Date: 20240705
  Transmission Date: 20241017
  Serious: No
  Sender: GILEAD
  Company Number: JP-JT-EVA201804000GILEAD-001

PATIENT
  Age: 40 Year
  Sex: Male

DRUGS (3)
  1. EMTRICITABINE\TENOFOVIR DISOPROXIL FUMARATE [Suspect]
     Active Substance: EMTRICITABINE\TENOFOVIR DISOPROXIL FUMARATE
     Indication: Acquired immunodeficiency syndrome
     Dosage: 1 DF, QD
     Route: 048
     Dates: start: 20120817, end: 20170210
  2. ISENTRESS [Suspect]
     Active Substance: RALTEGRAVIR POTASSIUM
     Indication: Acquired immunodeficiency syndrome
     Dosage: 800 MG, QD
     Route: 048
     Dates: start: 20120817, end: 20170210
  3. TIVICAY [Suspect]
     Active Substance: DOLUTEGRAVIR SODIUM
     Indication: Acquired immunodeficiency syndrome
     Dosage: 50 MG, QD
     Route: 048
     Dates: start: 20170211

REACTIONS (4)
  - Osteopenia [Not Recovered/Not Resolved]
  - Hypercholesterolaemia [Recovering/Resolving]
  - Amylase increased [Not Recovered/Not Resolved]
  - Blood cholinesterase increased [Recovering/Resolving]

NARRATIVE: CASE EVENT DATE: 20150925
